FAERS Safety Report 9192347 (Version 2)
Quarter: 2013Q4

REPORT INFORMATION
  Report Type: Spontaneous
  Country: US (occurrence: US)
  Receive Date: 20130327
  Receipt Date: 20131127
  Transmission Date: 20140711
  Serious: Yes (Other)
  Sender: FDA-Public Use
  Company Number: US-BAYER-2013-038261

PATIENT
  Sex: Female

DRUGS (8)
  1. YAZ [Suspect]
  2. YASMIN [Suspect]
  3. OCELLA [Suspect]
  4. KETOROLAC [Concomitant]
  5. CIPROFLOXACIN [Concomitant]
  6. CITALOPRAM [Concomitant]
  7. CLONAZEPAM [Concomitant]
  8. BUPROPION [Concomitant]

REACTIONS (5)
  - Cholecystitis chronic [None]
  - Gallbladder injury [None]
  - Injury [None]
  - Pain [None]
  - Pain [None]
